FAERS Safety Report 4534215-9 (Version None)
Quarter: 2004Q4

REPORT INFORMATION
  Report Type: 
  Country: None (occurrence: None)
  Receive Date: 20041214
  Receipt Date: 20040831
  Transmission Date: 20050328
  Serious: No
  Sender: FDA-Public Use
  Company Number: 2004233011US

PATIENT
  Age: 75 Year
  Sex: Female

DRUGS (2)
  1. BEXTRA [Suspect]
     Indication: ARTHRALGIA
     Dosage: 10 MG QD ORAL
     Route: 048
     Dates: start: 20040831
  2. UNSPECIFIED BLOOD PRESSURE PILL [Concomitant]

REACTIONS (2)
  - DIARRHOEA [None]
  - LACTOSE INTOLERANCE [None]
